FAERS Safety Report 14576517 (Version 1)
Quarter: 2018Q1

REPORT INFORMATION
  Report Type: Spontaneous
  Country: US (occurrence: US)
  Receive Date: 20180227
  Receipt Date: 20180227
  Transmission Date: 20180509
  Serious: No
  Sender: FDA-Public Use
  Company Number: US-PFIZER INC-2018079399

PATIENT
  Age: 13 Year
  Sex: Female

DRUGS (1)
  1. GENOTROPIN [Suspect]
     Active Substance: SOMATROPIN
     Dosage: 0.28MG/KG/WK

REACTIONS (4)
  - Injection site pain [Unknown]
  - Headache [Unknown]
  - Pain in extremity [Unknown]
  - Pyrexia [Unknown]
